FAERS Safety Report 9782988 (Version 1)
Quarter: 2013Q4

REPORT INFORMATION
  Report Type: Spontaneous
  Country: US (occurrence: None)
  Receive Date: 20131224
  Receipt Date: 20131224
  Transmission Date: 20140711
  Serious: Yes (Life-Threatening, Hospitalization, Other)
  Sender: FDA-Public Use
  Company Number: None

PATIENT
  Age: 68 Year
  Sex: Female
  Weight: 53.52 kg

DRUGS (1)
  1. AZOR [Suspect]
     Indication: HYPERTENSION
     Dosage: TAKEN BY MOUTH
     Route: 048

REACTIONS (4)
  - Diarrhoea [None]
  - Weight decreased [None]
  - Dehydration [None]
  - Electrolyte depletion [None]
